FAERS Safety Report 11458208 (Version 1)
Quarter: 2015Q3

REPORT INFORMATION
  Report Type: Spontaneous
  Country: US (occurrence: US)
  Receive Date: 20150904
  Receipt Date: 20150904
  Transmission Date: 20151125
  Serious: Yes (Other)
  Sender: FDA-Public Use
  Company Number: US-PFIZER INC-2015292163

PATIENT
  Age: 50 Year
  Sex: Female
  Weight: 62 kg

DRUGS (1)
  1. MORPHINE SULFATE. [Suspect]
     Active Substance: MORPHINE SULFATE
     Indication: PAIN
     Dosage: 0.25 MG, SINGLE (1 DOSE)
     Route: 042
     Dates: start: 20150823, end: 20150823

REACTIONS (3)
  - Pneumonia [Unknown]
  - Disease progression [Unknown]
  - Apnoea [Unknown]
